FAERS Safety Report 6744742-1 (Version None)
Quarter: 2010Q2

REPORT INFORMATION
  Report Type: 
  Country: None (occurrence: None)
  Receive Date: 20100527
  Receipt Date: 20091026
  Transmission Date: 20101027
  Serious: Yes (Other)
  Sender: FDA-Public Use
  Company Number: FDAAERSTESTINGFORCHDC26

PATIENT
  Age: 65 Year
  Sex: Female
  Weight: 66.2 kg

DRUGS (1)
  1. ROGAINE [Suspect]
     Indication: ALOPECIA
     Dosage: TEXT:UNSPECIFIED AMOUNT - TWICE DAILY
     Route: 061

REACTIONS (1)
  - GLAUCOMA [None]
